FAERS Safety Report 16309371 (Version 2)
Quarter: 2019Q2

REPORT INFORMATION
  Report Type: Spontaneous
  Country: US (occurrence: US)
  Receive Date: 20190514
  Receipt Date: 20190530
  Transmission Date: 20190711
  Serious: Yes (Hospitalization)
  Sender: FDA-Public Use
  Company Number: US-VIFOR (INTERNATIONAL) INC.-VIT-2019-04253

PATIENT
  Age: 82 Year
  Sex: Male
  Weight: 93.52 kg

DRUGS (31)
  1. PEPCID [Concomitant]
     Active Substance: FAMOTIDINE
  2. LIDOCAINE. [Concomitant]
     Active Substance: LIDOCAINE
  3. MULTIVITAMIN [Concomitant]
     Active Substance: VITAMINS
  4. OXYCODONE [Concomitant]
     Active Substance: OXYCODONE
  5. NORVASC [Concomitant]
     Active Substance: AMLODIPINE BESYLATE
  6. AMOXICILLIN. [Concomitant]
     Active Substance: AMOXICILLIN
     Indication: PROPHYLAXIS
  7. FLORINEF ACETATE [Concomitant]
     Active Substance: FLUDROCORTISONE ACETATE
  8. XOPENEX [Concomitant]
     Active Substance: LEVALBUTEROL HYDROCHLORIDE
  9. SYNTHROID [Concomitant]
     Active Substance: LEVOTHYROXINE SODIUM
  10. LOPRESSOR [Concomitant]
     Active Substance: METOPROLOL TARTRATE
  11. CELEXA [Concomitant]
     Active Substance: CITALOPRAM HYDROBROMIDE
  12. FERROUS SULFATE. [Concomitant]
     Active Substance: FERROUS SULFATE
  13. INSULIN [Concomitant]
     Active Substance: INSULIN NOS
     Route: 058
  14. SOLOSITE WOUND GEL [Concomitant]
  15. VELTASSA [Suspect]
     Active Substance: PATIROMER
     Indication: HYPERKALAEMIA
     Route: 048
     Dates: start: 2019, end: 2019
  16. COLACE [Concomitant]
     Active Substance: DOCUSATE SODIUM
  17. MELATONIN [Concomitant]
     Active Substance: MELATONIN
  18. CITRIC ACID CLEAR AF [Concomitant]
  19. PROSOURCE LIQUID [Concomitant]
     Indication: SUPPLEMENTATION THERAPY
  20. PROTONIX [Concomitant]
     Active Substance: PANTOPRAZOLE SODIUM
  21. SENOKOT [Concomitant]
     Active Substance: SENNOSIDES
  22. TYLENOL [Concomitant]
     Active Substance: ACETAMINOPHEN
  23. LIDOCAINE. [Concomitant]
     Active Substance: LIDOCAINE
     Route: 061
  24. MAGNESIUM OXIDE. [Concomitant]
     Active Substance: MAGNESIUM OXIDE
  25. MYCOLOG [Concomitant]
     Active Substance: GRAMICIDIN\NEOMYCIN SULFATE\NYSTATIN\TRIAMCINOLONE ACETONIDE
  26. SODIUM BICARBONATE. [Concomitant]
     Active Substance: SODIUM BICARBONATE
  27. TORSEMIDE. [Concomitant]
     Active Substance: TORSEMIDE
  28. VELTASSA [Suspect]
     Active Substance: PATIROMER
     Dates: start: 201904, end: 201904
  29. VITAMIN D [Concomitant]
     Active Substance: VITAMIN D NOS
  30. COENZYME Q10 [Concomitant]
     Active Substance: UBIDECARENONE
  31. ZINC OXIDE. [Concomitant]
     Active Substance: ZINC OXIDE

REACTIONS (2)
  - Abdominal pain upper [Unknown]
  - Hyperkalaemia [Recovered/Resolved]

NARRATIVE: CASE EVENT DATE: 2019
